FAERS Safety Report 18927822 (Version 3)
Quarter: 2021Q1

REPORT INFORMATION
  Report Type: Spontaneous
  Country: US (occurrence: US)
  Receive Date: 20210223
  Receipt Date: 20210316
  Transmission Date: 20210420
  Serious: Yes (Hospitalization, Other)
  Sender: FDA-Public Use
  Company Number: US-UNITED THERAPEUTICS-UNT-2021-000906

PATIENT
  Age: 45 Year
  Sex: Female
  Weight: 87.08 kg

DRUGS (5)
  1. TADALAFIL. [Concomitant]
     Active Substance: TADALAFIL
     Indication: PRODUCT USED FOR UNKNOWN INDICATION
     Dosage: UNK
     Route: 065
  2. LETAIRIS [Concomitant]
     Active Substance: AMBRISENTAN
     Indication: PRODUCT USED FOR UNKNOWN INDICATION
     Dosage: UNK
     Route: 065
  3. REMODULIN [Suspect]
     Active Substance: TREPROSTINIL
     Dosage: UNK, CONTINUING
     Route: 058
  4. REMODULIN [Suspect]
     Active Substance: TREPROSTINIL
     Indication: PULMONARY ARTERIAL HYPERTENSION
     Dosage: UNK, CONTINUING
     Route: 058
     Dates: start: 20110901
  5. REMODULIN [Suspect]
     Active Substance: TREPROSTINIL
     Dosage: 0.087 ?G/KG, CONTINUING
     Route: 058

REACTIONS (4)
  - SARS-CoV-2 test positive [Unknown]
  - Pneumonia [Unknown]
  - Nausea [Unknown]
  - Sepsis [Unknown]

NARRATIVE: CASE EVENT DATE: 202101
